FAERS Safety Report 6179327-1 (Version None)
Quarter: 2009Q2

REPORT INFORMATION
  Report Type: 
  Country: None (occurrence: None)
  Receive Date: 20090505
  Receipt Date: 20090427
  Transmission Date: 20091009
  Serious: Yes (Other)
  Sender: FDA-Public Use
  Company Number: US-JNJFOC-20090401004

PATIENT
  Sex: Female
  Weight: 68.04 kg

DRUGS (3)
  1. REMICADE [Suspect]
     Dosage: RESUMED AT 28 WEEKS GESTATION
     Route: 042
  2. REMICADE [Suspect]
     Indication: JUVENILE ARTHRITIS
     Route: 042
  3. PREDNISONE [Concomitant]
     Route: 048

REACTIONS (3)
  - BLINDNESS [None]
  - DRUG EXPOSURE DURING PREGNANCY [None]
  - MIGRAINE [None]
